FAERS Safety Report 5808312-1 (Version None)
Quarter: 2008Q3

REPORT INFORMATION
  Report Type: 
  Country: None (occurrence: None)
  Receive Date: 20080707
  Receipt Date: 20080623
  Transmission Date: 20090109
  Serious: Yes (Other)
  Sender: FDA-Public Use
  Company Number: AEUSA200800148

PATIENT
  Age: 12 Year
  Sex: Male
  Weight: 56 kg

DRUGS (3)
  1. IMMUNE GLOBULIN INTRAVENOUS (HUMAN) [Suspect]
     Indication: IMMUNODEFICIENCY COMMON VARIABLE
     Dosage: QM; IV
     Route: 042
  2. AMOXICILLIN CLAVULANIC [Concomitant]
  3. ACID [Concomitant]

REACTIONS (1)
  - NEPHROTIC SYNDROME [None]
